FAERS Safety Report 17068518 (Version 1)
Quarter: 2019Q4

REPORT INFORMATION
  Report Type: Spontaneous
  Country: US (occurrence: US)
  Receive Date: 20191123
  Receipt Date: 20191123
  Transmission Date: 20200122
  Serious: No
  Sender: FDA-Public Use
  Company Number: US-PURDUE-USA-2019-0146024

PATIENT
  Sex: Female
  Weight: 64.41 kg

DRUGS (1)
  1. HYDROCODONE BITARTRATE (SIMILAR TO NDA 206627) [Suspect]
     Active Substance: HYDROCODONE BITARTRATE
     Indication: TOOTHACHE
     Route: 048

REACTIONS (3)
  - Abdominal discomfort [Unknown]
  - Unevaluable event [Unknown]
  - Feeling abnormal [Unknown]
